FAERS Safety Report 4615529-0 (Version None)
Quarter: 2005Q2

REPORT INFORMATION
  Report Type: 
  Country: None (occurrence: None)
  Receive Date: 20050311
  Receipt Date: 20041220
  Transmission Date: 20051028
  Serious: No
  Sender: FDA-Public Use
  Company Number: 2004-BP-14179BP

PATIENT
  Sex: Female

DRUGS (7)
  1. SPIRIVA [Suspect]
     Indication: CHRONIC OBSTRUCTIVE PULMONARY DISEASE
     Dosage: 18 MCG (18 MCG, 18 IN 1 D), IH
     Route: 055
     Dates: start: 20040101
  2. SPIRIVA [Suspect]
  3. ADVAIR DISKUS 100/50 [Concomitant]
  4. XOPENEX [Concomitant]
  5. AVANDIA [Concomitant]
  6. GLYBURIDE [Concomitant]
  7. ACETYLSALICYLIC ACID SRT [Concomitant]

REACTIONS (1)
  - DYSPNOEA EXACERBATED [None]
